FAERS Safety Report 6686064-3 (Version None)
Quarter: 2010Q2

REPORT INFORMATION
  Report Type: 
  Country: None (occurrence: None)
  Receive Date: 20100414
  Receipt Date: 20100405
  Transmission Date: 20101027
  Serious: Yes (Death, Life-Threatening)
  Sender: FDA-Public Use
  Company Number: 009405

PATIENT
  Age: 6 Year
  Sex: Male

DRUGS (4)
  1. BUSULFEX [Suspect]
     Indication: STEM CELL TRANSPLANT
     Dosage: 1.1 MG/KG INTRAVENOUS
     Route: 042
  2. CARBOPLATIN [Concomitant]
  3. THIOTEPA [Concomitant]
  4. MELPHALAN HYDROCHLORIDE [Concomitant]

REACTIONS (3)
  - ORGANISING PNEUMONIA [None]
  - PNEUMOCYSTIS JIROVECI PNEUMONIA [None]
  - RESPIRATORY FAILURE [None]
